FAERS Safety Report 14583184 (Version 3)
Quarter: 2018Q3

REPORT INFORMATION
  Report Type: Report from Study
  Country: JP (occurrence: JP)
  Receive Date: 20180228
  Receipt Date: 20180712
  Transmission Date: 20181010
  Serious: Yes (Hospitalization, Other)
  Sender: FDA-Public Use
  Company Number: JP-INCYTE CORPORATION-2016IN003295

PATIENT

DRUGS (13)
  1. ISCOTIN [Concomitant]
     Active Substance: ISONIAZID
     Indication: OPPORTUNISTIC INFECTION PROPHYLAXIS
     Dosage: 300 MG, QD
     Route: 048
     Dates: start: 20160118
  2. JAKAVI [Suspect]
     Active Substance: RUXOLITINIB
     Dosage: 5 MG, BID
     Route: 048
     Dates: start: 20170609, end: 20170623
  3. JAKAVI [Suspect]
     Active Substance: RUXOLITINIB
     Dosage: 5 MG, QD
     Route: 048
     Dates: start: 20170624, end: 20170627
  4. PREDNISOLONE. [Concomitant]
     Active Substance: PREDNISOLONE
     Indication: PRIMARY MYELOFIBROSIS
     Dosage: 10 MG, QD
     Route: 048
     Dates: start: 20160224
  5. PREDNISOLONE. [Concomitant]
     Active Substance: PREDNISOLONE
     Indication: ARTHRALGIA
  6. JAKAVI [Suspect]
     Active Substance: RUXOLITINIB
     Indication: PRIMARY MYELOFIBROSIS
     Dosage: 10 MG, BID
     Route: 048
     Dates: start: 20160118, end: 20160211
  7. ACICLOVIR [Concomitant]
     Active Substance: ACYCLOVIR
     Indication: OPPORTUNISTIC INFECTION PROPHYLAXIS
     Dosage: 200 MG, QD
     Route: 048
     Dates: start: 20160118
  8. JAKAVI [Suspect]
     Active Substance: RUXOLITINIB
     Dosage: 5 MG, BID
     Route: 048
     Dates: start: 20160212, end: 20161026
  9. JAKAVI [Suspect]
     Active Substance: RUXOLITINIB
     Dosage: 15 MG, BID
     Route: 048
     Dates: start: 20161201, end: 20170215
  10. DICLOFENAC NA [Suspect]
     Active Substance: DICLOFENAC SODIUM
     Indication: PRODUCT USED FOR UNKNOWN INDICATION
     Dosage: 75 MG, QD
     Route: 048
     Dates: start: 20160127, end: 20160217
  11. JAKAVI [Suspect]
     Active Substance: RUXOLITINIB
     Dosage: 10 MG, BID
     Route: 048
     Dates: start: 20161027, end: 20161130
  12. JAKAVI [Suspect]
     Active Substance: RUXOLITINIB
     Dosage: 10 MG, BID
     Route: 048
     Dates: start: 20170216, end: 20170608
  13. IBUPROFEN. [Concomitant]
     Active Substance: IBUPROFEN
     Indication: PRODUCT USED FOR UNKNOWN INDICATION
     Dosage: UNK
     Route: 065

REACTIONS (12)
  - Blood alkaline phosphatase increased [Recovered/Resolved]
  - Anaemia [Not Recovered/Not Resolved]
  - Jaw fracture [Recovering/Resolving]
  - Platelet count decreased [Recovered/Resolved]
  - Transformation to acute myeloid leukaemia [Recovering/Resolving]
  - Aspartate aminotransferase increased [Recovered/Resolved]
  - Arthralgia [Recovering/Resolving]
  - Alanine aminotransferase increased [Recovered/Resolved]
  - Primary myelofibrosis [Unknown]
  - Drug effect incomplete [Unknown]
  - Fall [Recovered/Resolved]
  - White blood cell count decreased [Recovered/Resolved]

NARRATIVE: CASE EVENT DATE: 20160128
